FAERS Safety Report 24669545 (Version 4)
Quarter: 2025Q1

REPORT INFORMATION
  Report Type: Spontaneous
  Country: US (occurrence: US)
  Receive Date: 20241127
  Receipt Date: 20250221
  Transmission Date: 20250408
  Serious: Yes (Other)
  Sender: BAYER HEALTHCARE PHARMACEUTICALS INC.
  Company Number: US-BAYER-2024A165683

PATIENT
  Age: 17 Year
  Sex: Male

DRUGS (6)
  1. JIVI [Suspect]
     Active Substance: DAMOCTOCOG ALFA PEGOL
  2. JIVI [Suspect]
     Active Substance: DAMOCTOCOG ALFA PEGOL
  3. JIVI [Suspect]
     Active Substance: DAMOCTOCOG ALFA PEGOL
     Dates: start: 20241104, end: 20241104
  4. JIVI [Suspect]
     Active Substance: DAMOCTOCOG ALFA PEGOL
     Dates: start: 20250108
  5. JIVI [Suspect]
     Active Substance: DAMOCTOCOG ALFA PEGOL
  6. JIVI [Suspect]
     Active Substance: DAMOCTOCOG ALFA PEGOL

REACTIONS (5)
  - Haemarthrosis [None]
  - Haemarthrosis [None]
  - Haemarthrosis [None]
  - Haemarthrosis [Recovered/Resolved]
  - Arthralgia [None]

NARRATIVE: CASE EVENT DATE: 20241104
